FAERS Safety Report 7756823-4 (Version None)
Quarter: 2011Q3

REPORT INFORMATION
  Report Type: 
  Country: None (occurrence: None)
  Receive Date: 20110916
  Receipt Date: 20110909
  Transmission Date: 20111222
  Serious: Yes (Life-Threatening, Hospitalization, Other)
  Sender: FDA-Public Use
  Company Number: PHHY2011FR57155

PATIENT
  Sex: Male

DRUGS (2)
  1. LEVOFLOXACIN [Suspect]
     Indication: OSTEOMYELITIS
     Dosage: 750 MG, QD
     Route: 048
     Dates: start: 20110525, end: 20110530
  2. RIFAMPICIN [Suspect]
     Indication: OSTEOMYELITIS
     Dosage: 600 MG, BID
     Route: 048
     Dates: start: 20110525, end: 20110531

REACTIONS (10)
  - PARAESTHESIA [None]
  - HAEMATURIA [None]
  - HYPERKALAEMIA [None]
  - SCIATICA [None]
  - BLOOD UREA INCREASED [None]
  - BLOOD CREATININE INCREASED [None]
  - HYPERNATRAEMIA [None]
  - PARESIS [None]
  - RENAL FAILURE ACUTE [None]
  - SCAR [None]
